FAERS Safety Report 17055292 (Version 1)
Quarter: 2019Q4

REPORT INFORMATION
  Report Type: Spontaneous
  Country: IL (occurrence: IL)
  Receive Date: 20191120
  Receipt Date: 20191120
  Transmission Date: 20200122
  Serious: Yes (Hospitalization, Other)
  Sender: FDA-Public Use
  Company Number: IL-JAZZ-2019-IL-007109

PATIENT
  Sex: Male
  Weight: 18 kg

DRUGS (1)
  1. DEFITELIO [Suspect]
     Active Substance: DEFIBROTIDE SODIUM
     Indication: MICROANGIOPATHY
     Dosage: 30 MG/KG/DAY
     Route: 042
     Dates: start: 20190520, end: 20190526

REACTIONS (3)
  - Gastrointestinal haemorrhage [Recovering/Resolving]
  - Graft versus host disease [Recovering/Resolving]
  - Off label use [Unknown]

NARRATIVE: CASE EVENT DATE: 20190520
